FAERS Safety Report 4302753-X (Version None)
Quarter: 2004Q1

REPORT INFORMATION
  Report Type: 
  Country: None (occurrence: None)
  Receive Date: 20040224
  Receipt Date: 20030218
  Transmission Date: 20041129
  Serious: No
  Sender: FDA-Public Use
  Company Number: US-BRISTOL-MYERS SQUIBB COMPANY-12188249

PATIENT
  Age: 31 Year
  Sex: Female
  Weight: 57 kg

DRUGS (3)
  1. KENALOG [Suspect]
     Indication: DERMATITIS CONTACT
     Dosage: ROUTE: INJECTION INTO LEFT BUTTOCK
     Route: 030
     Dates: start: 20020622, end: 20020622
  2. LOESTRIN 1.5/30 [Concomitant]
  3. VITAMIN C [Concomitant]

REACTIONS (3)
  - INJECTION SITE ATROPHY [None]
  - INJECTION SITE ERYTHEMA [None]
  - INJECTION SITE PIGMENTATION CHANGES [None]
